FAERS Safety Report 7883300-2 (Version None)
Quarter: 2011Q4

REPORT INFORMATION
  Report Type: 
  Country: None (occurrence: None)
  Receive Date: 20111102
  Receipt Date: 20111024
  Transmission Date: 20120403
  Serious: Yes (Hospitalization, Other)
  Sender: FDA-Public Use
  Company Number: PHEH2011US07671

PATIENT
  Sex: Female

DRUGS (1)
  1. EXJADE [Suspect]
     Dosage: 2000 MG, QD
     Route: 048

REACTIONS (3)
  - ANAEMIA [None]
  - ARTHRALGIA [None]
  - PAROXYSMAL NOCTURNAL HAEMOGLOBINURIA [None]
